FAERS Safety Report 10176267 (Version 1)
Quarter: 2014Q2

REPORT INFORMATION
  Report Type: Spontaneous
  Country: US (occurrence: US)
  Receive Date: 20140516
  Receipt Date: 20140516
  Transmission Date: 20141212
  Serious: No
  Sender: FDA-Public Use
  Company Number: US-PFIZER INC-2014134252

PATIENT
  Age: 60 Year
  Sex: Female
  Weight: 71.7 kg

DRUGS (3)
  1. LYRICA [Suspect]
     Indication: FIBROMYALGIA
     Dosage: 50 MG, UNK (OCCASIONALLY )
     Dates: start: 201309
  2. LYRICA [Suspect]
     Dosage: UNK
     Dates: start: 201402
  3. LYRICA [Suspect]
     Dosage: 75 MG, 3X/DAY
     Dates: start: 2014

REACTIONS (1)
  - Insomnia [Not Recovered/Not Resolved]
